FAERS Safety Report 7112368-6 (Version None)
Quarter: 2010Q4

REPORT INFORMATION
  Report Type: 
  Country: None (occurrence: None)
  Receive Date: 20101119
  Receipt Date: 20101005
  Transmission Date: 20110411
  Serious: No
  Sender: FDA-Public Use
  Company Number: A0882363A

PATIENT
  Age: 60 Year
  Sex: Male
  Weight: 95 kg

DRUGS (3)
  1. AVODART [Suspect]
     Indication: BENIGN PROSTATIC HYPERPLASIA
     Dosage: .5MG PER DAY
     Route: 048
  2. PROSCAR [Suspect]
  3. NO CONCURRENT MEDICATION [Concomitant]

REACTIONS (2)
  - PENILE SIZE REDUCED [None]
  - PEYRONIE'S DISEASE [None]
